FAERS Safety Report 5235994-8 (Version None)
Quarter: 2007Q1

REPORT INFORMATION
  Report Type: 
  Country: None (occurrence: None)
  Receive Date: 20070212
  Receipt Date: 20070201
  Transmission Date: 20070707
  Serious: Yes (Hospitalization)
  Sender: FDA-Public Use
  Company Number: FI-JNJFOC-20061203048

PATIENT
  Sex: Female

DRUGS (6)
  1. REMICADE [Suspect]
     Indication: ANKYLOSING SPONDYLITIS
     Dosage: 200-400MG, 7 INFUSIONS IN TOTAL, TOTALLY 1900MG (APPROXIMATELY 271MG PER INFUSION AND 3-5MG/KG)
     Route: 042
  2. SULFASALAZINE [Concomitant]
     Indication: SPONDYLITIS
     Route: 048
  3. PREDNISONE [Concomitant]
     Route: 065
  4. METHOTREXATE [Concomitant]
     Indication: SPONDYLITIS
     Route: 048
  5. FOLIC ACID [Concomitant]
     Route: 065
  6. KALCIPOS D [Concomitant]
     Indication: SPONDYLITIS
     Route: 048

REACTIONS (1)
  - MALIGNANT MELANOMA [None]
